FAERS Safety Report 9535768 (Version 1)
Quarter: 2013Q3

REPORT INFORMATION
  Report Type: Spontaneous
  Country: FR (occurrence: FR)
  Receive Date: 20130919
  Receipt Date: 20130919
  Transmission Date: 20140515
  Serious: Yes (Hospitalization)
  Sender: FDA-Public Use
  Company Number: FR-ROCHE-1276673

PATIENT
  Age: 80 Year
  Sex: Male

DRUGS (10)
  1. RIVOTRIL [Suspect]
     Indication: GRAND MAL CONVULSION
     Dosage: 1 MG/ML
     Route: 042
     Dates: start: 20130801, end: 20130821
  2. BACTRIM [Suspect]
     Indication: PROSTATITIS
     Route: 042
     Dates: start: 20130802, end: 20130809
  3. LEVETIRACETAM [Suspect]
     Indication: PARTIAL SEIZURES
     Route: 042
     Dates: start: 20130724
  4. LEVETIRACETAM [Suspect]
     Route: 042
     Dates: start: 20130731
  5. LEVETIRACETAM [Suspect]
     Route: 042
     Dates: start: 20130804
  6. LEVETIRACETAM [Suspect]
     Route: 042
     Dates: end: 20130812
  7. OFLOXACIN [Suspect]
     Indication: PROSTATITIS
     Dosage: 200 MG/40ML
     Route: 042
     Dates: start: 20130801, end: 20130802
  8. ODRIK [Concomitant]
     Dosage: 1 DF IN THE MORNING
     Route: 065
  9. CORDARONE [Concomitant]
     Dosage: 1 DF IN THE MORNING EXCEPTING THE WEEK-END
     Route: 065
  10. COUMADINE [Concomitant]
     Dosage: 2 DF IN THE EVENING
     Route: 065

REACTIONS (1)
  - Encephalopathy [Recovered/Resolved]
